FAERS Safety Report 6837226-3 (Version None)
Quarter: 2010Q3

REPORT INFORMATION
  Report Type: 
  Country: None (occurrence: None)
  Receive Date: 20100713
  Receipt Date: 20070509
  Transmission Date: 20110219
  Serious: No
  Sender: FDA-Public Use
  Company Number: US-PFIZER INC-2007037649

PATIENT
  Sex: Female

DRUGS (5)
  1. CHANTIX [Suspect]
     Indication: SMOKING CESSATION THERAPY
     Dates: start: 20070507, end: 20070509
  2. FOSAMAX [Concomitant]
  3. NASAL PREPARATIONS [Concomitant]
     Indication: NASAL CONGESTION
  4. SUDAFED 12 HOUR [Concomitant]
     Indication: NASAL CONGESTION
  5. DOXEPIN HCL [Concomitant]
     Indication: SLEEP APNOEA SYNDROME

REACTIONS (3)
  - ANXIETY [None]
  - NERVOUSNESS [None]
  - POOR QUALITY SLEEP [None]
